FAERS Safety Report 6466547-1 (Version None)
Quarter: 2009Q4

REPORT INFORMATION
  Report Type: 
  Country: None (occurrence: None)
  Receive Date: 20091201
  Receipt Date: 20091201
  Transmission Date: 20100525
  Serious: Yes (Hospitalization)
  Sender: FDA-Public Use
  Company Number: None

PATIENT
  Sex: Male
  Weight: 61.7 kg

DRUGS (2)
  1. TRIMETHOPRIM + SULFAMETHOXAZOLE [Suspect]
     Indication: ANTIFUNGAL PROPHYLAXIS
     Dosage: 1 TABLET EVERY 12 HOURS PO
     Route: 048
     Dates: start: 20091023, end: 20091119
  2. TRIMETHOPRIM + SULFAMETHOXAZOLE [Suspect]
     Indication: TOXOPLASMOSIS PROPHYLAXIS
     Dosage: 1 TABLET EVERY 12 HOURS PO
     Route: 048
     Dates: start: 20091023, end: 20091119

REACTIONS (3)
  - CHAPPED LIPS [None]
  - DEHYDRATION [None]
  - RENAL FAILURE ACUTE [None]
